FAERS Safety Report 15537696 (Version 1)
Quarter: 2018Q4

REPORT INFORMATION
  Report Type: Spontaneous
  Country: US (occurrence: US)
  Receive Date: 20181022
  Receipt Date: 20181022
  Transmission Date: 20190205
  Serious: Yes (Disabling)
  Sender: FDA-Public Use
  Company Number: None

PATIENT
  Age: 62 Year
  Sex: Female
  Weight: 51.75 kg

DRUGS (1)
  1. PROLIA [Suspect]
     Active Substance: DENOSUMAB
     Indication: OSTEOPOROSIS
     Dosage: ?          QUANTITY:1 INJECTION(S);OTHER FREQUENCY:6 MONTHS;?
     Route: 030
     Dates: start: 20181001

REACTIONS (5)
  - Headache [None]
  - Insomnia [None]
  - Dyspepsia [None]
  - Pain in extremity [None]
  - Sinus disorder [None]

NARRATIVE: CASE EVENT DATE: 20181001
